FAERS Safety Report 13887421 (Version 1)
Quarter: 2017Q3

REPORT INFORMATION
  Report Type: Spontaneous
  Country: US (occurrence: US)
  Receive Date: 20170821
  Receipt Date: 20170821
  Transmission Date: 20171127
  Serious: No
  Sender: FDA-Public Use
  Company Number: US-ROCHE-786269

PATIENT
  Age: 47 Year
  Sex: Female
  Weight: 68 kg

DRUGS (8)
  1. PREDNISONE. [Concomitant]
     Active Substance: PREDNISONE
     Dosage: DOSAGE:20 MG TAB SIG:1/2 TABLET ORAL EVERY MORNING.DOSAGE:5MG TAB SIG:1 TABORAL OD AS DI DISPENSE 90
     Route: 048
  2. RELAFEN [Concomitant]
     Active Substance: NABUMETONE
     Dosage: DOSAGE:750MG TAB SIG: 1 TABLET ORAL TWICEA DAY AS D ORAL DISPENSE: 60 REFILLS:2
     Route: 048
  3. TREXIMET [Concomitant]
     Active Substance: NAPROXEN SODIUM\SUMATRIPTAN SUCCINATE
     Dosage: DOSAGE: 85-500MG TABLET SIG: TAKE PRN ORAL.
     Route: 048
  4. METHOTREXATE SODIUM. [Concomitant]
     Active Substance: METHOTREXATE SODIUM
     Dosage: DOSAGE: 2.5 MG TABLET SIG: TAKE 5 TABLETS ORAL ONCE A WEEK, ORAL DISPENSE 65
     Route: 048
  5. NATURE MADE VITAMIN D [Concomitant]
     Dosage: DOSGARE:OTC SIG:ADMINISTER 1 TABLET BY MOUTH. DRUG REPORTED AS NATURE MADE.
     Route: 065
  6. ACTEMRA [Suspect]
     Active Substance: TOCILIZUMAB
     Indication: RHEUMATOID ARTHRITIS
     Route: 042
     Dates: start: 20110620, end: 20110620
  7. PROPRANOLOL [Concomitant]
     Active Substance: PROPRANOLOL HYDROCHLORIDE
     Dosage: DOSAGE:40MG TAB SIG:TAKE 1 TABLET ORAL TWICE A DAY
     Route: 048
  8. VITAMIN [Concomitant]
     Active Substance: VITAMINS
     Dosage: DOSAGE: TABLET SIG: TAKE ONE TABLET BY MOUTH ONCE A ORAL
     Route: 048

REACTIONS (4)
  - Pallor [Recovered/Resolved]
  - Dizziness [Recovered/Resolved]
  - Vomiting [Recovered/Resolved]
  - Swollen tongue [Unknown]

NARRATIVE: CASE EVENT DATE: 20110620
